FAERS Safety Report 8517384-5 (Version None)
Quarter: 2012Q3

REPORT INFORMATION
  Report Type: 
  Country: None (occurrence: None)
  Receive Date: 20120718
  Receipt Date: 20120717
  Transmission Date: 20120928
  Serious: Yes (Other)
  Sender: FDA-Public Use
  Company Number: US-ROCHE-1087581

PATIENT
  Sex: Female
  Weight: 58.7 kg

DRUGS (5)
  1. XELODA [Suspect]
     Indication: OVARIAN CANCER
     Route: 048
     Dates: start: 20120503, end: 20120713
  2. OXYCODONE HCL [Concomitant]
     Indication: PAIN
     Route: 048
     Dates: start: 20120309
  3. COUMADIN [Concomitant]
     Indication: THROMBOSIS
     Dosage: 25MG/125MG DAILY
     Route: 048
     Dates: start: 20111212
  4. FLOMAX [Concomitant]
     Indication: BLADDER SPASM
     Route: 048
     Dates: start: 20120531
  5. OXALIPLATIN [Concomitant]
     Indication: OVARIAN CANCER
     Route: 042
     Dates: start: 20120503, end: 20120628

REACTIONS (3)
  - NEOPLASM PROGRESSION [None]
  - DRUG INEFFECTIVE [None]
  - NEOPLASM RECURRENCE [None]
